FAERS Safety Report 18044352 (Version 1)
Quarter: 2020Q3

REPORT INFORMATION
  Report Type: Spontaneous
  Country: IN (occurrence: IN)
  Receive Date: 20200720
  Receipt Date: 20200720
  Transmission Date: 20201103
  Serious: Yes (Hospitalization, Other)
  Sender: FDA-Public Use
  Company Number: IN-MACLEODS PHARMACEUTICALS US LTD-MAC2020027336

PATIENT

DRUGS (8)
  1. NORTRIPTYLINE [Suspect]
     Active Substance: NORTRIPTYLINE
     Dosage: 75 MILLIGRAM
     Route: 065
  2. OLANZAPINE. [Concomitant]
     Active Substance: OLANZAPINE
     Indication: MAJOR DEPRESSION
     Dosage: 10 MILLIGRAM
     Route: 065
  3. VALPROATE [Concomitant]
     Active Substance: VALPROIC ACID
     Dosage: 1000 MILLIGRAM
     Route: 065
  4. NORTRIPTYLINE [Suspect]
     Active Substance: NORTRIPTYLINE
     Indication: MAJOR DEPRESSION
     Dosage: 25 MILLIGRAM
     Route: 065
  5. VENLAFAXINE [Suspect]
     Active Substance: VENLAFAXINE HYDROCHLORIDE
     Indication: MAJOR DEPRESSION
     Dosage: 75 MILLIGRAM
     Route: 065
     Dates: start: 201707
  6. NORTRIPTYLINE [Suspect]
     Active Substance: NORTRIPTYLINE
     Dosage: 50 MILLIGRAM
     Route: 065
  7. NORTRIPTYLINE [Suspect]
     Active Substance: NORTRIPTYLINE
     Dosage: 25 MILLIGRAM
     Route: 065
  8. VALPROATE [Concomitant]
     Active Substance: VALPROIC ACID
     Indication: SEIZURE PROPHYLAXIS
     Dosage: 600 MILLIGRAM, QD
     Route: 065

REACTIONS (4)
  - Inappropriate antidiuretic hormone secretion [Recovered/Resolved]
  - Hyponatraemic seizure [Recovered/Resolved]
  - Generalised tonic-clonic seizure [Recovered/Resolved]
  - Blood sodium decreased [Recovered/Resolved]

NARRATIVE: CASE EVENT DATE: 2017
